FAERS Safety Report 7028049-3 (Version None)
Quarter: 2010Q4

REPORT INFORMATION
  Report Type: 
  Country: None (occurrence: None)
  Receive Date: 20101005
  Receipt Date: 20100928
  Transmission Date: 20110411
  Serious: Yes (Other)
  Sender: FDA-Public Use
  Company Number: US-ELI_LILLY_AND_COMPANY-US201008004665

PATIENT
  Sex: Male

DRUGS (8)
  1. HUMALOG [Suspect]
     Indication: DIABETES MELLITUS
     Dosage: UNK, 3/D
  2. LAMICTAL [Concomitant]
     Indication: CONVULSION
     Dosage: 200 MG, DAILY (1/D)
  3. LOTREL [Concomitant]
     Dosage: 10 MG, DAILY (1/D)
  4. LOTREL [Concomitant]
     Dosage: 40 MG, DAILY (1/D)
  5. VYTORIN [Concomitant]
     Dosage: 10 MG, DAILY (1/D)
  6. PLAVIX [Concomitant]
     Dosage: 75 MG, DAILY (1/D)
  7. SYNTHROID [Concomitant]
     Dosage: 0.175 MG, DAILY (1/D)
  8. LANTUS [Concomitant]
     Dosage: 15 U, DAILY (1/D)

REACTIONS (8)
  - ASPARTATE AMINOTRANSFERASE INCREASED [None]
  - BLOOD BILIRUBIN INCREASED [None]
  - BLOOD CREATININE INCREASED [None]
  - BLOOD GLUCOSE INCREASED [None]
  - CONVULSION [None]
  - DRUG INEFFECTIVE [None]
  - HYPOGLYCAEMIA [None]
  - MICROALBUMINURIA [None]
